FAERS Safety Report 4932439-X (Version None)
Quarter: 2006Q1

REPORT INFORMATION
  Report Type: 
  Country: None (occurrence: None)
  Receive Date: 20060301
  Receipt Date: 20060222
  Transmission Date: 20060701
  Serious: Yes (Disabling)
  Sender: FDA-Public Use
  Company Number: 2006026606

PATIENT
  Age: 52 Year
  Sex: Female
  Weight: 79 kg

DRUGS (6)
  1. LYRICA [Suspect]
     Indication: NEURALGIA
     Dosage: 300 MG (150 MG, 2 IN 1 D), ORAL
     Route: 048
     Dates: start: 20060105, end: 20060114
  2. CO-DYDRAMOL (DIHYDROCODEINE BITARTRATE, PARACETAMOL) [Concomitant]
  3. QUININE SULFATE [Concomitant]
  4. NORTRIPTYLINE HCL [Concomitant]
  5. VENTOLIN [Concomitant]
  6. SPIRIVA [Concomitant]

REACTIONS (5)
  - CONDITION AGGRAVATED [None]
  - DIZZINESS [None]
  - JOINT SWELLING [None]
  - MOBILITY DECREASED [None]
  - PAIN [None]
